FAERS Safety Report 6961104-2 (Version None)
Quarter: 2010Q3

REPORT INFORMATION
  Report Type: 
  Country: None (occurrence: None)
  Receive Date: 20100823
  Receipt Date: 20100701
  Transmission Date: 20110219
  Serious: No
  Sender: FDA-Public Use
  Company Number: 015008

PATIENT
  Age: 19 Year
  Sex: Female
  Weight: 46 kg

DRUGS (6)
  1. CIMZIA [Suspect]
     Indication: ARTHRITIS
     Dosage: (400 MG 1X/MONTH SUBCUTANEOUS)
     Route: 058
     Dates: start: 20091112, end: 20100409
  2. CIMZIA [Suspect]
     Indication: CROHN'S DISEASE
     Dosage: (400 MG 1X/MONTH SUBCUTANEOUS)
     Route: 058
     Dates: start: 20091112, end: 20100409
  3. CELEBREX [Concomitant]
  4. LORATADINE [Concomitant]
  5. ASPIRIN [Concomitant]
  6. VALTREX [Concomitant]

REACTIONS (2)
  - PYREXIA [None]
  - SINUSITIS [None]
